FAERS Safety Report 4355569-2 (Version None)
Quarter: 2004Q2

REPORT INFORMATION
  Report Type: 
  Country: None (occurrence: None)
  Receive Date: 20040505
  Receipt Date: 20040423
  Transmission Date: 20050107
  Serious: Yes (Hospitalization)
  Sender: FDA-Public Use
  Company Number: 03P-167-0232604-00

PATIENT
  Age: 49 Year
  Sex: Male
  Weight: 99.7 kg

DRUGS (16)
  1. HUMIRA [Suspect]
     Indication: PSORIATIC ARTHROPATHY
     Dosage: SUBCUTANEOUS (SEE IMAGE)
     Route: 058
     Dates: start: 20030704
  2. GLYBURIDE [Concomitant]
  3. ROFECOXIB [Concomitant]
  4. BISOPROLOL [Concomitant]
  5. ENALAPRIL MALEATE [Concomitant]
  6. LEFLUNOMIDE [Concomitant]
  7. ASPIRIN [Concomitant]
  8. MORPHINE SULFATE [Concomitant]
  9. MORPHINE SULFATE [Concomitant]
  10. MORPHINE SULFATE [Concomitant]
  11. NITRAZEPAM [Concomitant]
  12. PROMETHAZINE HCL [Concomitant]
  13. DIHYDROCODEINE [Concomitant]
  14. ENALAPRIL MALEATE [Concomitant]
  15. CALCIUM CARBONATE [Concomitant]
  16. RISEDRONATE SODIUM [Concomitant]

REACTIONS (4)
  - CIRCULATORY COLLAPSE [None]
  - CONVULSION [None]
  - LOSS OF CONSCIOUSNESS [None]
  - URINARY INCONTINENCE [None]
